FAERS Safety Report 9032554 (Version 1)
Quarter: 2013Q1

REPORT INFORMATION
  Report Type: Spontaneous
  Country: US (occurrence: US)
  Receive Date: 20130122
  Receipt Date: 20130122
  Transmission Date: 20140127
  Serious: No
  Sender: FDA-Public Use
  Company Number: US-PFIZER INC-2013026585

PATIENT
  Age: 30 Year
  Sex: Female
  Weight: 68.48 kg

DRUGS (2)
  1. ALPRAZOLAM [Suspect]
     Indication: ANXIETY
     Dosage: 0.5 MG, 3X/DAY
     Route: 048
     Dates: start: 2012, end: 20130119
  2. CELEXA [Concomitant]
     Dosage: 20 MG, UNK

REACTIONS (1)
  - Drug ineffective [Unknown]
